FAERS Safety Report 9116804 (Version 2)
Quarter: 2014Q3

REPORT INFORMATION
  Report Type: Spontaneous
  Country: CA (occurrence: CA)
  Receive Date: 20130225
  Receipt Date: 20140710
  Transmission Date: 20150326
  Serious: Yes (Other)
  Sender: FDA-Public Use
  Company Number: CA-COVIDIEN/TYCO HEALTHCARE/MALLINCKRODT-T201300840

PATIENT
  Age: 26 Year
  Sex: Female

DRUGS (1)
  1. CONRAY [Suspect]
     Active Substance: IOTHALAMATE MEGLUMINE
     Indication: INFERTILITY TESTS
     Dosage: 15 ML, SINGLE
     Route: 067
     Dates: start: 20130206, end: 20130206

REACTIONS (3)
  - Dysphonia [Recovered/Resolved]
  - Incorrect route of drug administration [Recovered/Resolved]
  - Throat tightness [Recovered/Resolved]

NARRATIVE: CASE EVENT DATE: 20130206
